FAERS Safety Report 18967313 (Version 1)
Quarter: 2021Q1

REPORT INFORMATION
  Report Type: Spontaneous
  Country: US (occurrence: US)
  Receive Date: 20210304
  Receipt Date: 20210304
  Transmission Date: 20210420
  Serious: Yes (Other)
  Sender: FDA-Public Use
  Company Number: US-JNJFOC-20210237290

PATIENT
  Age: 55 Year
  Sex: Male

DRUGS (2)
  1. SPRAVATO [Suspect]
     Active Substance: ESKETAMINE
     Indication: DEPRESSION
     Dosage: 84 MG, 17 DOSES
     Dates: start: 20200806, end: 20201208
  2. SPRAVATO [Suspect]
     Active Substance: ESKETAMINE
     Dates: start: 20210204

REACTIONS (1)
  - Vascular graft [Unknown]
